FAERS Safety Report 23329284 (Version 1)
Quarter: 2023Q4

REPORT INFORMATION
  Report Type: Spontaneous
  Country: GB (occurrence: GB)
  Receive Date: 20231222
  Receipt Date: 20231222
  Transmission Date: 20240110
  Serious: Yes (Other)
  Sender: FDA-Public Use
  Company Number: None

PATIENT
  Age: 74 Year
  Weight: 93 kg

DRUGS (2)
  1. GABAPENTIN [Suspect]
     Active Substance: GABAPENTIN
     Indication: Adverse drug reaction
     Dosage: TIME INTERVAL: 0.33333333 DAYS: 300MG 3X DAY; ;
     Route: 065
     Dates: start: 20231129, end: 20231209
  2. TESTOSTERONE [Concomitant]
     Active Substance: TESTOSTERONE
     Indication: Olfacto genital dysplasia
     Dates: start: 197706

REACTIONS (1)
  - Sexual dysfunction [Recovering/Resolving]

NARRATIVE: CASE EVENT DATE: 20231204
